FAERS Safety Report 7677136-5 (Version None)
Quarter: 2011Q3

REPORT INFORMATION
  Report Type: 
  Country: None (occurrence: None)
  Receive Date: 20110811
  Receipt Date: 20110803
  Transmission Date: 20111222
  Serious: Yes (Hospitalization, Other)
  Sender: FDA-Public Use
  Company Number: GB-JNJFOC-20101003458

PATIENT
  Age: 68 Year
  Sex: Female

DRUGS (9)
  1. IBUPROFEN [Suspect]
     Route: 048
  2. RIVAROXABAN [Suspect]
     Indication: THROMBOSIS PROPHYLAXIS
     Route: 048
     Dates: start: 20101002, end: 20101003
  3. ASPIRIN [Suspect]
     Indication: CARDIOVASCULAR DISORDER
     Route: 048
     Dates: end: 20101003
  4. ATENOLOL [Concomitant]
  5. ACETAMINOPHEN AND CODEINE PHOSPHATE [Concomitant]
  6. RAMIPRIL [Concomitant]
  7. IBUPROFEN [Suspect]
     Indication: POSTOPERATIVE ANALGESIA
     Route: 048
     Dates: start: 20101003, end: 20101003
  8. LEVOTHYROXINE SODIUM [Concomitant]
  9. MIRTAZAPINE [Concomitant]

REACTIONS (2)
  - OESOPHAGITIS HAEMORRHAGIC [None]
  - HYPOTENSION [None]
